FAERS Safety Report 5207077-4 (Version None)
Quarter: 2007Q1

REPORT INFORMATION
  Report Type: 
  Country: None (occurrence: None)
  Receive Date: 20070112
  Receipt Date: 20061229
  Transmission Date: 20070707
  Serious: Yes (Death, Hospitalization)
  Sender: FDA-Public Use
  Company Number: US-JNJFOC-20070100451

PATIENT
  Sex: Female
  Weight: 138.7 kg

DRUGS (1)
  1. ORTHO EVRA [Suspect]
     Indication: CONTRACEPTION
     Route: 062

REACTIONS (3)
  - INTRACARDIAC THROMBUS [None]
  - PNEUMONIA [None]
  - PULMONARY EMBOLISM [None]
